FAERS Safety Report 5672191-6 (Version None)
Quarter: 2008Q1

REPORT INFORMATION
  Report Type: 
  Country: None (occurrence: None)
  Receive Date: 20080319
  Receipt Date: 20080311
  Transmission Date: 20080703
  Serious: Yes (Other)
  Sender: FDA-Public Use
  Company Number: US-ROCHE-551738

PATIENT
  Age: 14 Year
  Sex: Female
  Weight: 54.4 kg

DRUGS (4)
  1. TAMIFLU [Suspect]
     Indication: INFLUENZA
     Route: 065
     Dates: start: 20080217, end: 20080221
  2. ABILIFY [Concomitant]
     Indication: BIPOLAR DISORDER
     Dosage: DOSAGE: DAILY
  3. ASPIRIN [Concomitant]
     Dates: end: 20080216
  4. MOTRIN [Concomitant]
     Dates: start: 20080217

REACTIONS (2)
  - IRRITABILITY [None]
  - MOOD SWINGS [None]
